FAERS Safety Report 17418327 (Version 3)
Quarter: 2020Q1

REPORT INFORMATION
  Report Type: Spontaneous
  Country: DE (occurrence: DE)
  Receive Date: 20200214
  Receipt Date: 20200304
  Transmission Date: 20200409
  Serious: Yes (Hospitalization)
  Sender: FDA-Public Use
  Company Number: DE-ABBVIE-20K-062-3235932-00

PATIENT
  Age: 45 Year
  Sex: Male
  Weight: 102 kg

DRUGS (4)
  1. METHOTREXATE. [Concomitant]
     Active Substance: METHOTREXATE
     Indication: PSORIASIS
     Dates: start: 20170515, end: 20190214
  2. HUMIRA [Suspect]
     Active Substance: ADALIMUMAB
     Indication: PSORIASIS
     Route: 058
     Dates: start: 20190228, end: 20190430
  3. SKYRIZI [Suspect]
     Active Substance: RISANKIZUMAB-RZAA
     Indication: PSORIASIS
     Route: 058
     Dates: start: 20191212, end: 201912
  4. SKYRIZI [Suspect]
     Active Substance: RISANKIZUMAB-RZAA
     Route: 058
     Dates: start: 20191217

REACTIONS (13)
  - Drug hypersensitivity [Unknown]
  - Neurodermatitis [Unknown]
  - Rash [Not Recovered/Not Resolved]
  - Therapeutic product effect incomplete [Unknown]
  - Red cell distribution width increased [Unknown]
  - Neutrophil count increased [Unknown]
  - Gamma-glutamyltransferase increased [Unknown]
  - Psoriasis [Not Recovered/Not Resolved]
  - C-reactive protein increased [Unknown]
  - Haematocrit increased [Unknown]
  - Dermatitis atopic [Unknown]
  - Alanine aminotransferase increased [Unknown]
  - Drug resistance [Unknown]

NARRATIVE: CASE EVENT DATE: 20200109
